FAERS Safety Report 13847128 (Version 22)
Quarter: 2020Q2

REPORT INFORMATION
  Report Type: Spontaneous
  Country: US (occurrence: US)
  Receive Date: 20170808
  Receipt Date: 20200417
  Transmission Date: 20200713
  Serious: Yes (Death, Hospitalization, Other)
  Sender: FDA-Public Use
  Company Number: US-ACTELION-A-US2017-157745

PATIENT
  Age: 43 Year
  Sex: Male
  Weight: 142.86 kg

DRUGS (11)
  1. VELETRI [Suspect]
     Active Substance: EPOPROSTENOL
     Dosage: 8.12 NG/KG, PER MIN
     Route: 042
  2. OPSUMIT [Suspect]
     Active Substance: MACITENTAN
     Dosage: 10 MG, QD
     Route: 048
  3. XARELTO [Concomitant]
     Active Substance: RIVAROXABAN
  4. VELETRI [Suspect]
     Active Substance: EPOPROSTENOL
     Dosage: 12.5 NG/KG, PER MIN
     Route: 042
  5. ADEMPAS [Suspect]
     Active Substance: RIOCIGUAT
     Indication: PRODUCT USED FOR UNKNOWN INDICATION
     Dosage: 0.5 MG, TID
     Route: 065
  6. ADCIRCA [Concomitant]
     Active Substance: TADALAFIL
  7. VELETRI [Suspect]
     Active Substance: EPOPROSTENOL
     Indication: PULMONARY HYPERTENSION
     Dosage: 16.458 NG/KG, PER MIN
     Route: 042
  8. VELETRI [Suspect]
     Active Substance: EPOPROSTENOL
     Dosage: 4.16 NG/KG, PER MIN
     Route: 042
  9. ADEMPAS [Suspect]
     Active Substance: RIOCIGUAT
     Dosage: 1.5 MG, TID
     Route: 065
  10. OPSUMIT [Suspect]
     Active Substance: MACITENTAN
     Indication: PULMONARY HYPERTENSION
     Dosage: 10 MG, QD
     Route: 048
     Dates: start: 20161213, end: 20190412
  11. SILDENAFIL. [Concomitant]
     Active Substance: SILDENAFIL

REACTIONS (33)
  - Fluid overload [Unknown]
  - Arterial rupture [Unknown]
  - Palpitations [Recovered/Resolved]
  - Oedema [Unknown]
  - Dizziness [Recovered/Resolved]
  - Haemoptysis [Fatal]
  - Condition aggravated [Unknown]
  - Vomiting [Unknown]
  - Cellulitis [Recovering/Resolving]
  - Hypotension [Unknown]
  - Respiratory failure [Fatal]
  - Therapeutic embolisation [Unknown]
  - Pulmonary hypertension [Fatal]
  - Dyspnoea [Recovered/Resolved with Sequelae]
  - Infusion site erythema [Unknown]
  - Blood pressure decreased [Unknown]
  - Right ventricular failure [Fatal]
  - Hospitalisation [Unknown]
  - Dialysis [Unknown]
  - Peripheral swelling [Unknown]
  - Atrial flutter [Recovered/Resolved]
  - Blood bilirubin abnormal [Unknown]
  - Hypervolaemia [Recovered/Resolved]
  - Abdominal distension [Unknown]
  - Weight loss poor [Unknown]
  - Catheter site rash [Unknown]
  - Headache [Recovered/Resolved]
  - Scrotal oedema [Recovered/Resolved]
  - Wheezing [Unknown]
  - Dyspnoea exertional [Recovered/Resolved]
  - Infusion site discharge [Unknown]
  - Nausea [Unknown]
  - Flushing [Unknown]

NARRATIVE: CASE EVENT DATE: 20170301
